FAERS Safety Report 23685414 (Version 1)
Quarter: 2024Q1

REPORT INFORMATION
  Report Type: Spontaneous
  Country: CN (occurrence: CN)
  Receive Date: 20240329
  Receipt Date: 20240329
  Transmission Date: 20240410
  Serious: Yes (Other)
  Sender: FDA-Public Use
  Company Number: CN-QILU PHARMACEUTICAL (HAINAN) CO.  LTD.-QLH-000050-2024

PATIENT
  Age: 73 Year
  Sex: Female

DRUGS (2)
  1. OXALIPLATIN [Suspect]
     Active Substance: OXALIPLATIN
     Indication: Colorectal cancer
     Dosage: 190 MG ON DAY 1 FOR SIX CYCLES, AS ADJUVANT CHEMOTHERAPY
     Route: 065
     Dates: start: 202110, end: 202202
  2. CAPECITABINE [Suspect]
     Active Substance: CAPECITABINE
     Indication: Colorectal cancer
     Dosage: 1.5 G TWICE DAILY ON DAY 1 TO 14 FOR SIX CYCLES, AS ADJUVANT CHEMOTHERAPY
     Route: 048
     Dates: start: 202110, end: 202202

REACTIONS (2)
  - Acute myeloid leukaemia [Unknown]
  - Myelosuppression [Recovered/Resolved]
